FAERS Safety Report 23409423 (Version 1)
Quarter: 2024Q1

REPORT INFORMATION
  Report Type: Spontaneous
  Country: US (occurrence: None)
  Receive Date: 20240116
  Receipt Date: 20240116
  Transmission Date: 20240410
  Serious: Yes (Hospitalization)
  Sender: FDA-Public Use
  Company Number: None

PATIENT
  Age: 47 Year
  Sex: Male

DRUGS (11)
  1. COPAXONE [Suspect]
     Active Substance: GLATIRAMER ACETATE
     Indication: Multiple sclerosis
     Dosage: INJECT 40 MG UNDER THE SKIN (SUBCUTANEOUS INJECTION) THREE TIMES PER WEEK
     Route: 058
     Dates: start: 20190104
  2. CALCIUM [Concomitant]
     Active Substance: CALCIUM
  3. DESVENLAFAX ER [Concomitant]
  4. GLATIRAMER [Concomitant]
     Active Substance: GLATIRAMER
  5. IRON [Concomitant]
     Active Substance: IRON
  6. KLOR-CON [Concomitant]
     Active Substance: POTASSIUM CHLORIDE
  7. MODAFINIL [Concomitant]
     Active Substance: MODAFINIL
  8. MODAFINIL [Concomitant]
     Active Substance: MODAFINIL
  9. POT CHLORIDE POW [Concomitant]
  10. TAMSULOSIN [Concomitant]
     Active Substance: TAMSULOSIN
  11. TOBRA/DEXAME SUS [Concomitant]

REACTIONS (3)
  - Road traffic accident [None]
  - Multiple fractures [None]
  - Therapy interrupted [None]

NARRATIVE: CASE EVENT DATE: 20240112
